FAERS Safety Report 5412743-1 (Version None)
Quarter: 2007Q3

REPORT INFORMATION
  Report Type: 
  Country: None (occurrence: None)
  Receive Date: 20070809
  Receipt Date: 20070724
  Transmission Date: 20080115
  Serious: Yes (Congenital Anomaly)
  Sender: FDA-Public Use
  Company Number: 016827

PATIENT
  Sex: Male

DRUGS (2)
  1. METHOTREXATE [Suspect]
     Indication: DRUG EXPOSURE DURING PREGNANCY
     Dosage: 50 MG/M2, SINGLE, TRANSPLACENTAL
     Route: 064
  2. MISOPROSTOL [Suspect]
     Indication: DRUG EXPOSURE DURING PREGNANCY
     Dosage: 800 UG, SINGLE, 4 DAY AFTER MTX, TRANSPLACENTAL
     Route: 064

REACTIONS (15)
  - ALOPECIA [None]
  - CAESAREAN SECTION [None]
  - CLINODACTYLY [None]
  - CONGENITAL FOOT MALFORMATION [None]
  - CONGENITAL JOINT MALFORMATION [None]
  - DEVELOPMENTAL DELAY [None]
  - DRUG EXPOSURE DURING PREGNANCY [None]
  - DUBOWITZ SYNDROME [None]
  - DYSMORPHISM [None]
  - EYE DISORDER [None]
  - FOETAL GROWTH RETARDATION [None]
  - FOOT DEFORMITY [None]
  - MICROCEPHALY [None]
  - MULTIPLE CONGENITAL ABNORMALITIES [None]
  - POST PROCEDURAL COMPLICATION [None]
